FAERS Safety Report 4380940-2 (Version None)
Quarter: 2004Q2

REPORT INFORMATION
  Report Type: 
  Country: None (occurrence: None)
  Receive Date: 20040614
  Receipt Date: 20040603
  Transmission Date: 20050107
  Serious: Yes (Other)
  Sender: FDA-Public Use
  Company Number: HQWYE273907JUN04

PATIENT
  Age: 5 Year
  Sex: Male
  Weight: 34.96 kg

DRUGS (2)
  1. EFFEXOR XR [Suspect]
     Indication: MIGRAINE
     Dosage: 37.5 MG 1X PER 1 DAY, ORAL
     Route: 048
     Dates: start: 20040501, end: 20040602
  2. EFFEXOR XR [Suspect]
     Indication: PROPHYLAXIS
     Dosage: 37.5 MG 1X PER 1 DAY, ORAL
     Route: 048
     Dates: start: 20040501, end: 20040602

REACTIONS (3)
  - ABNORMAL BEHAVIOUR [None]
  - AGGRESSION [None]
  - HOSTILITY [None]
